FAERS Safety Report 5842559-3 (Version None)
Quarter: 2008Q3

REPORT INFORMATION
  Report Type: 
  Country: None (occurrence: None)
  Receive Date: 20080812
  Receipt Date: 20080801
  Transmission Date: 20090109
  Serious: Yes (Other)
  Sender: FDA-Public Use
  Company Number: US-PFIZER INC-2008064513

PATIENT
  Sex: Female

DRUGS (5)
  1. BEXTRA [Suspect]
     Indication: ARTHRALGIA
     Dates: start: 20030801, end: 20030810
  2. PERCOCET [Concomitant]
     Indication: ARTHRALGIA
     Dates: end: 20030810
  3. ZOLOFT [Concomitant]
     Indication: DEPRESSION
  4. NASAL PREPARATIONS [Concomitant]
  5. ZYRTEC [Concomitant]

REACTIONS (1)
  - STEVENS-JOHNSON SYNDROME [None]
